FAERS Safety Report 4752880-8 (Version None)
Quarter: 2005Q3

REPORT INFORMATION
  Report Type: 
  Country: None (occurrence: None)
  Receive Date: 20050714
  Receipt Date: 20050127
  Transmission Date: 20060218
  Serious: Yes (Hospitalization)
  Sender: FDA-Public Use
  Company Number: 200413384US

PATIENT
  Age: 50 Year
  Sex: Female
  Weight: 81.8 kg

DRUGS (5)
  1. TAXOTERE [Suspect]
     Indication: BREAST CANCER
     Dosage: 57 MG QW IV
     Route: 042
     Dates: start: 20040224, end: 20040511
  2. TAXOTERE [Suspect]
     Indication: BREAST CANCER
     Dosage: 57 MG QW IV
     Route: 042
  3. WARFARIN SODIUM [Concomitant]
  4. DILTIAZEM [Concomitant]
  5. DECADRON [Concomitant]

REACTIONS (10)
  - AGEUSIA [None]
  - CARDIAC FAILURE CONGESTIVE [None]
  - DACRYOSTENOSIS ACQUIRED [None]
  - DYSPNOEA EXACERBATED [None]
  - EPISTAXIS [None]
  - HYPOAESTHESIA ORAL [None]
  - LACRIMATION INCREASED [None]
  - NAIL DISCOLOURATION [None]
  - NASAL CONGESTION [None]
  - ONYCHOLYSIS [None]
